FAERS Safety Report 6866696-X (Version None)
Quarter: 2010Q3

REPORT INFORMATION
  Report Type: 
  Country: None (occurrence: None)
  Receive Date: 20100722
  Receipt Date: 20100701
  Transmission Date: 20110219
  Serious: No
  Sender: FDA-Public Use
  Company Number: US-B.I. PHARMACEUTICALS,INC./RIDGEFIELD-2010-BP-07491BP

PATIENT
  Sex: Female

DRUGS (6)
  1. ATROVENT HFA [Suspect]
     Indication: COUGH
     Dosage: 6 PUF
     Route: 055
     Dates: start: 20100527
  2. HYDROCHLOROTHIAZIDE [Concomitant]
     Indication: HYPERTENSION
     Dosage: 25 MG
     Route: 048
  3. ADVAIR DISKUS 100/50 [Concomitant]
     Indication: COUGH
     Route: 055
  4. LANOXYN [Concomitant]
     Indication: CARDIAC DISORDER
     Route: 048
  5. AZOR [Concomitant]
     Indication: CARDIAC DISORDER
     Dosage: 540 MG
     Route: 048
  6. WARFARIN SODIUM [Concomitant]
     Indication: CARDIAC DISORDER
     Dosage: 5 MG
     Route: 048

REACTIONS (3)
  - COUGH [None]
  - NASOPHARYNGITIS [None]
  - PULMONARY CONGESTION [None]
